FAERS Safety Report 23511055 (Version 1)
Quarter: 2024Q1

REPORT INFORMATION
  Report Type: Spontaneous
  Country: US (occurrence: US)
  Receive Date: 20240212
  Receipt Date: 20240212
  Transmission Date: 20240410
  Serious: Yes (Death)
  Sender: FDA-Public Use
  Company Number: US-ENDO PHARMACEUTICALS INC-2024-000864

PATIENT
  Age: 41 Year
  Sex: Male

DRUGS (3)
  1. CLONAZEPAM [Suspect]
     Active Substance: CLONAZEPAM
     Indication: Product used for unknown indication
     Dosage: UNK UNKNOWN, UNKNOWN
     Route: 048
  2. PRAZOSIN [Suspect]
     Active Substance: PRAZOSIN
     Indication: Product used for unknown indication
     Dosage: UNK UNKNOWN, UNKNOWN
     Route: 048
  3. ALCOHOL [Suspect]
     Active Substance: ALCOHOL
     Indication: Product used for unknown indication
     Dosage: UNK UNKNOWN, UNKNOWN
     Route: 048

REACTIONS (2)
  - Completed suicide [Fatal]
  - Cardio-respiratory arrest [Fatal]

NARRATIVE: CASE EVENT DATE: 20220101
